FAERS Safety Report 4765869-X (Version None)
Quarter: 2005Q3

REPORT INFORMATION
  Report Type: 
  Country: None (occurrence: None)
  Receive Date: 20050907
  Receipt Date: 20050902
  Transmission Date: 20060218
  Serious: Yes (Life-Threatening)
  Sender: FDA-Public Use
  Company Number: 2005-132125-NL

PATIENT
  Age: 66 Year
  Sex: Male

DRUGS (5)
  1. ROCURONIUM BROMIDE [Suspect]
  2. FENTANYL [Suspect]
     Indication: SLEEP DISORDER
  3. MIDAZOLAM [Suspect]
     Indication: SLEEP DISORDER
  4. ALFENTANIL [Suspect]
     Indication: SENSORY DISTURBANCE
  5. PROPOFOL [Suspect]
     Indication: SENSORY DISTURBANCE

REACTIONS (9)
  - AMNESIA [None]
  - ANAPHYLACTIC REACTION [None]
  - CARDIAC ARREST [None]
  - CYANOSIS [None]
  - ELECTROMECHANICAL DISSOCIATION [None]
  - HYPOTENSION [None]
  - HYPOXIA [None]
  - PERSONALITY CHANGE [None]
  - VENTRICULAR FIBRILLATION [None]
